FAERS Safety Report 7348083-3 (Version None)
Quarter: 2011Q1

REPORT INFORMATION
  Report Type: 
  Country: None (occurrence: None)
  Receive Date: 20110311
  Receipt Date: 20110301
  Transmission Date: 20110831
  Serious: Yes (Other)
  Sender: FDA-Public Use
  Company Number: US-BAYER-2011-019094

PATIENT
  Sex: Female

DRUGS (1)
  1. MIRENA [Suspect]
     Indication: CONTRACEPTION
     Dosage: 20UNK, CONT
     Route: 015
     Dates: start: 20101101, end: 20110225

REACTIONS (4)
  - PAIN [None]
  - DEVICE DISLOCATION [None]
  - ABDOMINAL DISTENSION [None]
  - GENITAL HAEMORRHAGE [None]
